FAERS Safety Report 15110552 (Version 1)
Quarter: 2018Q3

REPORT INFORMATION
  Report Type: Spontaneous
  Country: FR (occurrence: FR)
  Receive Date: 20180705
  Receipt Date: 20180705
  Transmission Date: 20181010
  Serious: Yes (Life-Threatening, Hospitalization)
  Sender: FDA-Public Use
  Company Number: FR-PFIZER INC-2018267807

PATIENT
  Age: 28 Year
  Sex: Female
  Weight: 90 kg

DRUGS (4)
  1. STILNOX [Suspect]
     Active Substance: ZOLPIDEM TARTRATE
     Dosage: UNK
     Route: 048
     Dates: start: 2017
  2. TERCIAN [Concomitant]
     Active Substance: CYAMEMAZINE
     Route: 048
     Dates: start: 2016
  3. THERALENE [Concomitant]
     Active Substance: TRIMEPRAZINE
     Dosage: UNK
     Route: 048
     Dates: start: 2016
  4. XANAX [Suspect]
     Active Substance: ALPRAZOLAM
     Dosage: 30 DF, UNK
     Route: 048
     Dates: start: 2017

REACTIONS (4)
  - Somnolence [Recovered/Resolved]
  - Intentional product misuse [Recovering/Resolving]
  - Drug dependence [Recovering/Resolving]
  - Poisoning [Recovered/Resolved]

NARRATIVE: CASE EVENT DATE: 2017
